FAERS Safety Report 18343701 (Version 1)
Quarter: 2020Q4

REPORT INFORMATION
  Report Type: Spontaneous
  Country: AU (occurrence: AU)
  Receive Date: 20201005
  Receipt Date: 20201005
  Transmission Date: 20210114
  Serious: Yes (Other)
  Sender: FDA-Public Use
  Company Number: AU-SHIRE-AU202031838

PATIENT

DRUGS (1)
  1. FOSRENOL [Suspect]
     Active Substance: LANTHANUM CARBONATE
     Indication: PRODUCT USED FOR UNKNOWN INDICATION
     Dosage: 500 MILLIGRAM (1 TABLET IN THE MORNING, 1 TABLET AT LUNCH TIME AND 2 TABLETS AT NIGHT), 3 YEARS
     Route: 048

REACTIONS (2)
  - Choking [Unknown]
  - Product taste abnormal [Unknown]
